FAERS Safety Report 21663891 (Version 1)
Quarter: 2022Q4

REPORT INFORMATION
  Report Type: Spontaneous
  Country: US (occurrence: None)
  Receive Date: 20221129
  Receipt Date: 20221129
  Transmission Date: 20230112
  Serious: Yes (Hospitalization, Disabling)
  Sender: FDA-Public Use
  Company Number: None

PATIENT
  Age: 88 Year
  Sex: Male

DRUGS (26)
  1. ERLEADA [Suspect]
     Active Substance: APALUTAMIDE
     Indication: Prostate cancer
     Dosage: FREQUENCY : DAILY;?
     Route: 048
     Dates: start: 20210924
  2. AMLODIPINE [Concomitant]
  3. ASPIRIN [Concomitant]
     Active Substance: ASPIRIN
  4. CALCIUM [Concomitant]
  5. cinammon [Concomitant]
  6. FISH OIL [Concomitant]
  7. GABAPENTIN [Concomitant]
     Active Substance: GABAPENTIN
  8. HYDROCHLOROTHIAZIDE [Concomitant]
     Active Substance: HYDROCHLOROTHIAZIDE
  9. LIDODERM [Concomitant]
     Active Substance: LIDOCAINE
  10. LORATADINE [Concomitant]
     Active Substance: LORATADINE
  11. LOSARTAN [Concomitant]
     Active Substance: LOSARTAN
  12. MAGNESIUM [Concomitant]
     Active Substance: MAGNESIUM
  13. METOPROLOL [Concomitant]
     Active Substance: METOPROLOL
  14. VITAMINS [Concomitant]
     Active Substance: VITAMINS
  15. NIASPAN [Concomitant]
     Active Substance: NIACIN
  16. POTASSIUM [Concomitant]
     Active Substance: POTASSIUM
  17. MINERALS\VITAMINS [Concomitant]
     Active Substance: MINERALS\VITAMINS
  18. ROSUVASTATIN [Concomitant]
     Active Substance: ROSUVASTATIN
  19. TAMSULOSIN [Concomitant]
     Active Substance: TAMSULOSIN
  20. TRAMADOL [Concomitant]
     Active Substance: TRAMADOL
  21. VITAMIN B12 [Concomitant]
     Active Substance: CYANOCOBALAMIN
  22. VITAMIN C [Concomitant]
     Active Substance: ASCORBIC ACID
  23. LEVOTHYROXINE [Concomitant]
     Active Substance: LEVOTHYROXINE
  24. XGEVA [Concomitant]
     Active Substance: DENOSUMAB
  25. ELIGARD [Concomitant]
     Active Substance: LEUPROLIDE ACETATE
  26. AMIODARONE [Concomitant]
     Active Substance: AMIODARONE

REACTIONS (2)
  - Circulatory collapse [None]
  - Colon cancer [None]

NARRATIVE: CASE EVENT DATE: 20221015
